FAERS Safety Report 21107109 (Version 1)
Quarter: 2022Q3

REPORT INFORMATION
  Report Type: Spontaneous
  Country: US (occurrence: None)
  Receive Date: 20220720
  Receipt Date: 20220720
  Transmission Date: 20221027
  Serious: Yes (Other)
  Sender: FDA-Public Use
  Company Number: None

PATIENT
  Age: 67 Year
  Sex: Female
  Weight: 49.5 kg

DRUGS (9)
  1. ESTRADIOL [Suspect]
     Active Substance: ESTRADIOL
     Indication: Vestibulitis
     Dosage: OTHER QUANTITY : 1 GM;?OTHER FREQUENCY : 3 TIMES PER WEEK;?
     Route: 067
     Dates: start: 20220710, end: 20220719
  2. PRAVASTATIN [Concomitant]
     Active Substance: PRAVASTATIN
  3. EMGALITY [Concomitant]
     Active Substance: GALCANEZUMAB-GNLM
  4. FISH OIL [Concomitant]
     Active Substance: FISH OIL
  5. COENZYME Q10 [Concomitant]
     Active Substance: DIETARY SUPPLEMENT\UBIDECARENONE
  6. VITAMIN K [Concomitant]
     Active Substance: PHYTONADIONE
  7. CALCIUM [Concomitant]
     Active Substance: CALCIUM
  8. garlic capsules [Concomitant]
  9. glucosamin condroitin [Concomitant]

REACTIONS (2)
  - Pain [None]
  - Drug ineffective [None]

NARRATIVE: CASE EVENT DATE: 20220719
